FAERS Safety Report 4683544-7 (Version None)
Quarter: 2005Q2

REPORT INFORMATION
  Report Type: 
  Country: None (occurrence: None)
  Receive Date: 20050606
  Receipt Date: 20050606
  Transmission Date: 20051028
  Serious: Yes (Hospitalization)
  Sender: FDA-Public Use
  Company Number: None

PATIENT
  Age: 15 Year
  Sex: Male
  Weight: 53.978 kg

DRUGS (1)
  1. AMOXICILLIN [Suspect]
     Indication: OTITIS MEDIA
     Dosage: 2 CAPSULES   TID   ORAL
     Route: 048
     Dates: start: 20050524, end: 20050526

REACTIONS (1)
  - STEVENS-JOHNSON SYNDROME [None]
